FAERS Safety Report 15869442 (Version 1)
Quarter: 2019Q1

REPORT INFORMATION
  Report Type: Spontaneous
  Country: US (occurrence: US)
  Receive Date: 20190125
  Receipt Date: 20190125
  Transmission Date: 20190417
  Serious: No
  Sender: FDA-Public Use
  Company Number: US-BAUSCH-BL-2019-001596

PATIENT
  Age: 69 Year
  Sex: Female

DRUGS (3)
  1. ELIDEL [Suspect]
     Active Substance: PIMECROLIMUS
     Dosage: HAS MISSED DOSES ABOUT 5 TIMES
  2. VITAMIN E [Concomitant]
     Active Substance: .ALPHA.-TOCOPHEROL
     Indication: PRODUCT USED FOR UNKNOWN INDICATION
  3. ELIDEL [Suspect]
     Active Substance: PIMECROLIMUS
     Indication: ECZEMA
     Dosage: PATIENT APPLIES A THIN LAYER TO THE AFFECTED AREA TWICE DAILY
     Route: 061
     Dates: start: 201808

REACTIONS (3)
  - Product availability issue [Unknown]
  - Therapy cessation [Unknown]
  - Anxiety [Not Recovered/Not Resolved]

NARRATIVE: CASE EVENT DATE: 20190114
